FAERS Safety Report 6748560-X (Version None)
Quarter: 2010Q2

REPORT INFORMATION
  Report Type: 
  Country: None (occurrence: None)
  Receive Date: 20100601
  Receipt Date: 20100518
  Transmission Date: 20101027
  Serious: Yes (Other)
  Sender: FDA-Public Use
  Company Number: IT-RANBAXY-2010RR-34047

PATIENT
  Sex: Female

DRUGS (2)
  1. PHENOBARBITAL [Suspect]
     Indication: EPILEPSY
     Dosage: 100 MG, BID
  2. CARBAMAZEPINE [Suspect]
     Indication: EPILEPSY
     Dosage: 200 MG, BID

REACTIONS (1)
  - DRUG EXPOSURE DURING PREGNANCY [None]
